FAERS Safety Report 20161098 (Version 5)
Quarter: 2022Q1

REPORT INFORMATION
  Report Type: Report from Study
  Country: US (occurrence: US)
  Receive Date: 20211208
  Receipt Date: 20220303
  Transmission Date: 20220423
  Serious: No
  Sender: FDA-Public Use
  Company Number: US-NOVARTISTESTPH-NVSC2021US280801

PATIENT
  Sex: Male

DRUGS (2)
  1. ENTRESTO [Suspect]
     Active Substance: SACUBITRIL\VALSARTAN
     Indication: Product used for unknown indication
     Dosage: UNK(15 PILLS A DAY)
     Route: 065
     Dates: start: 201906
  2. ENTRESTO [Suspect]
     Active Substance: SACUBITRIL\VALSARTAN
     Dosage: 1 DOSAGE FORM, BID(49/51)
     Route: 048

REACTIONS (14)
  - Emotional distress [Unknown]
  - Throat clearing [Unknown]
  - Dyspnoea [Unknown]
  - Hunger [Unknown]
  - Confusional state [Unknown]
  - Depression [Unknown]
  - Thirst [Unknown]
  - Memory impairment [Unknown]
  - Depressed mood [Unknown]
  - Weight increased [Unknown]
  - Feeling abnormal [Unknown]
  - Cough [Unknown]
  - Overdose [Unknown]
  - Dizziness [Unknown]
